FAERS Safety Report 8098001-8 (Version None)
Quarter: 2012Q1

REPORT INFORMATION
  Report Type: 
  Country: None (occurrence: None)
  Receive Date: 20120128
  Receipt Date: 20110815
  Transmission Date: 20120608
  Serious: No
  Sender: FDA-Public Use
  Company Number: US-ABBOTT-11P-163-0846896-00

PATIENT
  Sex: Male

DRUGS (12)
  1. VITAMIN D [Concomitant]
     Indication: VITAMIN SUPPLEMENTATION
  2. ASPIRIN [Concomitant]
     Indication: CARDIAC DISORDER
  3. OMEPRAZOLE [Concomitant]
     Indication: GASTROOESOPHAGEAL REFLUX DISEASE
  4. COMBIVENT [Concomitant]
     Indication: ASTHMA
  5. LORAZEPAM [Concomitant]
     Indication: ANXIETY
  6. MEGESTROL ACETATE [Concomitant]
     Indication: DYSPEPSIA
  7. MONOPRIL [Concomitant]
     Indication: ARTHRITIS
  8. DONEPEZIL HCL [Concomitant]
     Indication: CONFUSIONAL STATE
  9. MORPHINE [Concomitant]
     Indication: PAIN
  10. HUMIRA [Suspect]
     Indication: PSORIASIS
     Dates: start: 20090101, end: 20110301
  11. MECLAZINE [Concomitant]
     Indication: DIZZINESS
  12. TRAZODONE HCL [Concomitant]
     Indication: SLEEP DISORDER THERAPY

REACTIONS (1)
  - TOOTH ABSCESS [None]
